FAERS Safety Report 10877092 (Version 1)
Quarter: 2015Q1

REPORT INFORMATION
  Report Type: Spontaneous
  Country: US (occurrence: None)
  Receive Date: 20150224
  Receipt Date: 20150224
  Transmission Date: 20150721
  Serious: Yes (Hospitalization)
  Sender: FDA-Public Use
  Company Number: 2015COR00039

PATIENT
  Age: 49 Year
  Sex: Male

DRUGS (4)
  1. TEGRETOL [Concomitant]
     Active Substance: CARBAMAZEPINE
  2. DOXYCYCLINE. [Suspect]
     Active Substance: DOXYCYCLINE
     Indication: TOOTH INFECTION
  3. PHENOBARBITAL. [Concomitant]
     Active Substance: PHENOBARBITAL
  4. PANTOPRAZOLE [Concomitant]
     Active Substance: PANTOPRAZOLE SODIUM

REACTIONS (3)
  - Abdominal distension [None]
  - Pancreatitis acute [None]
  - Abdominal pain [None]
